FAERS Safety Report 9758360 (Version 1)
Quarter: 2013Q4

REPORT INFORMATION
  Report Type: Spontaneous
  Country: US (occurrence: None)
  Receive Date: 20131213
  Receipt Date: 20131213
  Transmission Date: 20140711
  Serious: Yes (Hospitalization)
  Sender: FDA-Public Use
  Company Number: None

PATIENT
  Age: 42 Year
  Sex: Male
  Weight: 130 kg

DRUGS (1)
  1. ELTROMBOPAG [Suspect]
     Indication: APLASTIC ANAEMIA
     Route: 048
     Dates: start: 20131108, end: 20131125

REACTIONS (2)
  - Atrial fibrillation [None]
  - Weight increased [None]
